FAERS Safety Report 9684705 (Version 2)
Quarter: 2014Q1

REPORT INFORMATION
  Report Type: Spontaneous
  Country: US (occurrence: None)
  Receive Date: 20131108
  Receipt Date: 20140122
  Transmission Date: 20141002
  Serious: Yes (Hospitalization)
  Sender: FDA-Public Use
  Company Number: AMAG201300188

PATIENT
  Age: 83 Year
  Sex: Male

DRUGS (2)
  1. FERAHEME [Suspect]
     Indication: IRON DEFICIENCY ANAEMIA
     Dosage: SINGLE
     Route: 042
     Dates: start: 20131008, end: 20131008
  2. COUMADIN (WARFARIN SODIUM) [Concomitant]

REACTIONS (1)
  - Gastrointestinal haemorrhage [None]
